FAERS Safety Report 7208819-9 (Version None)
Quarter: 2010Q4

REPORT INFORMATION
  Report Type: 
  Country: None (occurrence: None)
  Receive Date: 20101222
  Receipt Date: 20101209
  Transmission Date: 20110411
  Serious: Yes (Other)
  Sender: FDA-Public Use
  Company Number: 2010SP064020

PATIENT
  Age: 35 Year
  Sex: Female
  Weight: 90.2658 kg

DRUGS (4)
  1. FOLLISTIM [Suspect]
     Indication: ASSISTED FERTILISATION
     Dosage: 300 IU;QD;SC
     Route: 058
     Dates: start: 20101101, end: 20101107
  2. PLACEBO [Suspect]
     Indication: ASSISTED FERTILISATION
     Dosage: 150 IU;ONCE; SC
     Route: 058
     Dates: start: 20101101, end: 20101101
  3. FOLLISTIM [Suspect]
     Indication: ASSISTED FERTILISATION
     Dosage: 300 IU; ONCE; SC
     Route: 058
     Dates: start: 20101108, end: 20101108
  4. GANIRELIX ACETATE INJECTION [Concomitant]

REACTIONS (1)
  - LIVER FUNCTION TEST ABNORMAL [None]
